FAERS Safety Report 17362974 (Version 2)
Quarter: 2020Q4

REPORT INFORMATION
  Report Type: Spontaneous
  Country: US (occurrence: US)
  Receive Date: 20200203
  Receipt Date: 20201228
  Transmission Date: 20210113
  Serious: Yes (Other)
  Sender: FDA-Public Use
  Company Number: US-GILEAD-2020-0448811

PATIENT
  Age: 62 Year
  Sex: Male
  Weight: 59 kg

DRUGS (43)
  1. DOLUTEGRAVIR [Concomitant]
     Active Substance: DOLUTEGRAVIR
  2. LEVOTHYROXINE. [Concomitant]
     Active Substance: LEVOTHYROXINE
  3. PRILOSEC [Concomitant]
     Active Substance: OMEPRAZOLE MAGNESIUM
  4. FOLIC ACID. [Concomitant]
     Active Substance: FOLIC ACID
  5. PROCRIT [Concomitant]
     Active Substance: ERYTHROPOIETIN
  6. THIAMINE. [Concomitant]
     Active Substance: THIAMINE
  7. TRIMETHOPRIM. [Concomitant]
     Active Substance: TRIMETHOPRIM
  8. DARUNAVIR ACCORD [Concomitant]
  9. DUONEB [Concomitant]
     Active Substance: ALBUTEROL SULFATE\IPRATROPIUM BROMIDE
  10. CARAFATE [Concomitant]
     Active Substance: SUCRALFATE
  11. CLARITIN ALLERGIC [Concomitant]
     Active Substance: OXYMETAZOLINE HYDROCHLORIDE
  12. DILAUDID [Concomitant]
     Active Substance: HYDROMORPHONE HYDROCHLORIDE
  13. HECTOROL [Concomitant]
     Active Substance: DOXERCALCIFEROL
  14. MIRALAX [Concomitant]
     Active Substance: POLYETHYLENE GLYCOL 3350
  15. EPOETIN ALFA BS [Concomitant]
     Active Substance: ERYTHROPOIETIN
  16. LIQUACEL [Concomitant]
  17. ERYTHROPOIETIN [Concomitant]
     Active Substance: ERYTHROPOIETIN
  18. LAXATIVE STOOL SOFTENER WITH SENNA [Concomitant]
  19. AMMONIUM LACTATE. [Concomitant]
     Active Substance: AMMONIUM LACTATE
  20. OMEPRAZOLE. [Concomitant]
     Active Substance: OMEPRAZOLE
  21. ONDANSETRON [Concomitant]
     Active Substance: ONDANSETRON
  22. PANTOPRAZOLE [Concomitant]
     Active Substance: PANTOPRAZOLE
  23. PROTONIX [OMEPRAZOLE] [Concomitant]
     Active Substance: OMEPRAZOLE
  24. AMOXICILLIN. [Concomitant]
     Active Substance: AMOXICILLIN
  25. ACETAMINOPHEN. [Concomitant]
     Active Substance: ACETAMINOPHEN
  26. DESMOPRESSIN [Concomitant]
     Active Substance: DESMOPRESSIN
  27. HYDROCORTISONE ACETATE. [Concomitant]
     Active Substance: HYDROCORTISONE ACETATE
  28. NAPROXEN. [Concomitant]
     Active Substance: NAPROXEN
  29. IPRATROPIUM BR [Concomitant]
  30. RITONAVIR. [Concomitant]
     Active Substance: RITONAVIR
  31. TRUVADA [Suspect]
     Active Substance: EMTRICITABINE\TENOFOVIR DISOPROXIL FUMARATE
     Indication: HIV INFECTION
     Dosage: UNK
     Route: 048
     Dates: start: 2004, end: 20170213
  32. MIRTAZAPINE. [Concomitant]
     Active Substance: MIRTAZAPINE
  33. COMBIVENT [Concomitant]
     Active Substance: ALBUTEROL SULFATE\IPRATROPIUM BROMIDE
  34. MIDODRINE [Concomitant]
     Active Substance: MIDODRINE
  35. ALBUTEROL HFA [Concomitant]
     Active Substance: ALBUTEROL SULFATE
  36. VITAMIN B1 AND B6 [Concomitant]
     Active Substance: PYRIDOXINE HYDROCHLORIDE\THIAMINE HYDROCHLORIDE
  37. ALBUTEROL SULFATE. [Concomitant]
     Active Substance: ALBUTEROL SULFATE
  38. OXYCODONE [Concomitant]
     Active Substance: OXYCODONE
  39. FINASTERIDE. [Concomitant]
     Active Substance: FINASTERIDE
  40. SUCRALFATE. [Concomitant]
     Active Substance: SUCRALFATE
  41. SULFAMETHOXAZOLE [Concomitant]
     Active Substance: SULFAMETHOXAZOLE
  42. PREDNISONE. [Concomitant]
     Active Substance: PREDNISONE
  43. SENNA ACUTIFOLIA [Concomitant]

REACTIONS (7)
  - Economic problem [Not Recovered/Not Resolved]
  - Pain [Not Recovered/Not Resolved]
  - Anxiety [Not Recovered/Not Resolved]
  - End stage renal disease [Not Recovered/Not Resolved]
  - Emotional distress [Not Recovered/Not Resolved]
  - Depression [Not Recovered/Not Resolved]
  - Anhedonia [Not Recovered/Not Resolved]

NARRATIVE: CASE EVENT DATE: 20161219
